FAERS Safety Report 25982071 (Version 1)
Quarter: 2025Q4

REPORT INFORMATION
  Report Type: Spontaneous
  Country: CN (occurrence: CN)
  Receive Date: 20251031
  Receipt Date: 20251031
  Transmission Date: 20260118
  Serious: Yes (Life-Threatening, Hospitalization, Other)
  Sender: AMGEN
  Company Number: CN-AMGEN-CHNSP2025212926

PATIENT
  Age: 60 Year
  Sex: Female

DRUGS (4)
  1. KYPROLIS [Suspect]
     Active Substance: CARFILZOMIB
     Indication: Product used for unknown indication
     Dosage: 30 MILLIGRAM, DAY 1,2
     Route: 065
     Dates: start: 20231222
  2. KYPROLIS [Suspect]
     Active Substance: CARFILZOMIB
     Dosage: 40 MILLIGRAM, D8-9, D15-16
     Route: 065
     Dates: start: 20231230
  3. POMALIDOMIDE [Concomitant]
     Active Substance: POMALIDOMIDE
     Dosage: 4 MILLIGRAM, DAY 1,2
     Route: 065
     Dates: start: 20231222
  4. DEXAMETHASONE [Concomitant]
     Active Substance: DEXAMETHASONE
     Dosage: 20 MILLIGRAM, D1-2, D8-9, D15-16
     Route: 065
     Dates: start: 20231222

REACTIONS (19)
  - Loss of consciousness [Recovering/Resolving]
  - Hyperhidrosis [Recovering/Resolving]
  - Aortic valve incompetence [Unknown]
  - Myelosuppression [Unknown]
  - Nephrolithiasis [Unknown]
  - Plasma cell myeloma [Unknown]
  - Hyperbilirubinaemia [Unknown]
  - Thrombocytopenia [Unknown]
  - Neuropathy peripheral [Unknown]
  - Leukopenia [Unknown]
  - Neutropenia [Unknown]
  - Arteriosclerosis [Unknown]
  - Thyroid mass [Unknown]
  - Renal cyst [Unknown]
  - Pulmonary mass [Unknown]
  - Intervertebral disc protrusion [Unknown]
  - Productive cough [Unknown]
  - Hypertension [Unknown]
  - Pyrexia [Unknown]

NARRATIVE: CASE EVENT DATE: 20240101
